FAERS Safety Report 8170131-1 (Version None)
Quarter: 2012Q1

REPORT INFORMATION
  Report Type: 
  Country: None (occurrence: None)
  Receive Date: 20120228
  Receipt Date: 20120216
  Transmission Date: 20120608
  Serious: Yes (Other)
  Sender: FDA-Public Use
  Company Number: PHHY2011AU95369

PATIENT
  Sex: Male
  Weight: 80 kg

DRUGS (7)
  1. SANDOSTATIN LAR [Suspect]
     Dosage: 30 MG, QW4
     Route: 030
     Dates: start: 20101201
  2. LIPITOR [Concomitant]
     Indication: DYSLIPIDAEMIA
     Dosage: 20 MG, ALTERNATE DAYS
     Route: 048
     Dates: start: 20060101
  3. ASPIRIN [Concomitant]
     Dosage: UNK UKN, UNK
     Dates: start: 20100101
  4. NEXIUM [Concomitant]
     Indication: GASTROOESOPHAGEAL REFLUX DISEASE
     Dosage: 20 MG,MANE
  5. CALCIUM CARBONATE [Concomitant]
     Indication: OSTEOPENIA
     Dosage: 600 MG MANE
     Dates: start: 20100101
  6. SANDOSTATIN LAR [Suspect]
     Indication: ACROMEGALY
     Dosage: 20 MG, QW4
     Route: 030
     Dates: start: 20100201
  7. TESTOSTERONE [Concomitant]
     Indication: SECONDARY HYPOGONADISM
     Dosage: 50 MG, MANE
     Dates: start: 20060101

REACTIONS (4)
  - INSULIN-LIKE GROWTH FACTOR INCREASED [None]
  - PAIN [None]
  - INJECTION SITE HAEMATOMA [None]
  - GAIT DISTURBANCE [None]
